FAERS Safety Report 23030121 (Version 2)
Quarter: 2023Q4

REPORT INFORMATION
  Report Type: Spontaneous
  Country: US (occurrence: US)
  Receive Date: 20231005
  Receipt Date: 20231103
  Transmission Date: 20240109
  Serious: Yes (Other)
  Sender: FDA-Public Use
  Company Number: US-IBSA PHARMA INC.-2023IBS000025

PATIENT

DRUGS (3)
  1. TIROSINT [Suspect]
     Active Substance: LEVOTHYROXINE SODIUM
     Indication: Hypothyroidism
     Dosage: 100 MICROGRAM, QD
     Route: 048
     Dates: start: 202301, end: 2023
  2. TIROSINT [Suspect]
     Active Substance: LEVOTHYROXINE SODIUM
     Dosage: 125 MICROGRAM, QD
     Route: 048
     Dates: start: 2023, end: 202308
  3. TIROSINT [Suspect]
     Active Substance: LEVOTHYROXINE SODIUM
     Dosage: 100 MICROGRAM, QD
     Route: 048
     Dates: start: 202308

REACTIONS (9)
  - Suicidal ideation [Unknown]
  - Depression suicidal [Unknown]
  - Feeling cold [Not Recovered/Not Resolved]
  - Drug abuse [Unknown]
  - Malaise [Unknown]
  - Asthenia [Unknown]
  - Feeling abnormal [Unknown]
  - Insomnia [Not Recovered/Not Resolved]
  - Drug ineffective [Unknown]

NARRATIVE: CASE EVENT DATE: 20230101
